FAERS Safety Report 4751881-3 (Version None)
Quarter: 2005Q3

REPORT INFORMATION
  Report Type: 
  Country: None (occurrence: None)
  Receive Date: 20050822
  Receipt Date: 20050510
  Transmission Date: 20060218
  Serious: No
  Sender: FDA-Public Use
  Company Number: PHEH2005US05325

PATIENT
  Age: 44 Year
  Sex: Female

DRUGS (2)
  1. ZELNORM [Suspect]
     Indication: IRRITABLE BOWEL SYNDROME
     Dosage: 6 MG, TID, ORAL
     Route: 048
     Dates: start: 20040601
  2. CONTRACEPTIVES UNS (CONTRACEPTIVES UNS) [Concomitant]

REACTIONS (2)
  - EYE INFECTION [None]
  - VISION BLURRED [None]
